FAERS Safety Report 9611029 (Version 1)
Quarter: 2013Q4

REPORT INFORMATION
  Report Type: Spontaneous
  Country: JP (occurrence: JP)
  Receive Date: 20131009
  Receipt Date: 20131009
  Transmission Date: 20140711
  Serious: Yes (Hospitalization)
  Sender: FDA-Public Use
  Company Number: JP-GLAXOSMITHKLINE-B0928350A

PATIENT
  Age: 70 Year
  Sex: Female

DRUGS (5)
  1. VALTREX [Suspect]
     Indication: HERPES ZOSTER
     Dosage: 1000MG THREE TIMES PER DAY
     Route: 048
     Dates: start: 20130928, end: 20131001
  2. VALTREX [Suspect]
     Indication: HERPES ZOSTER
     Dosage: 1000MG TWICE PER DAY
     Route: 048
     Dates: start: 20131002, end: 20131004
  3. PREDONINE [Concomitant]
     Dosage: 5MG THREE TIMES PER DAY
     Route: 065
  4. MEILAX [Concomitant]
     Dosage: 1MG PER DAY
     Route: 048
  5. PERSANTIN [Concomitant]
     Dosage: 100MG TWICE PER DAY
     Route: 065

REACTIONS (5)
  - Loss of consciousness [Not Recovered/Not Resolved]
  - Convulsion [Not Recovered/Not Resolved]
  - Renal impairment [Unknown]
  - Toxic encephalopathy [Unknown]
  - Stress cardiomyopathy [Unknown]
